FAERS Safety Report 23475890 (Version 1)
Quarter: 2024Q1

REPORT INFORMATION
  Report Type: Report from Study
  Country: US (occurrence: US)
  Receive Date: 20240204
  Receipt Date: 20240204
  Transmission Date: 20240409
  Serious: No
  Sender: FDA-Public Use
  Company Number: US-EXELIXIS-CABO-23061063

PATIENT
  Sex: Female

DRUGS (14)
  1. CABOMETYX [Suspect]
     Active Substance: CABOZANTINIB S-MALATE
     Indication: Hepatocellular carcinoma
     Dosage: 40 MG
     Route: 048
     Dates: start: 20230125
  2. DICYCLOMINE [Concomitant]
     Active Substance: DICYCLOMINE HYDROCHLORIDE
  3. FAMOTIDINE [Concomitant]
     Active Substance: FAMOTIDINE
  4. FUROSEMIDE [Concomitant]
     Active Substance: FUROSEMIDE
  5. GAS-X [Concomitant]
     Active Substance: DIMETHICONE
  6. IMODIUM A-D [Concomitant]
     Active Substance: LOPERAMIDE HYDROCHLORIDE
  7. NADOLOL [Concomitant]
     Active Substance: NADOLOL
  8. ONDANSETRON [Concomitant]
     Active Substance: ONDANSETRON
  9. ROSUVASTATIN [Concomitant]
     Active Substance: ROSUVASTATIN
  10. SPIRONOLACTONE [Concomitant]
     Active Substance: SPIRONOLACTONE
  11. STRIVERDI RESPIMAT [Concomitant]
     Active Substance: OLODATEROL HYDROCHLORIDE
  12. SUCRALFATE [Concomitant]
     Active Substance: SUCRALFATE
  13. TYLENOL [Concomitant]
     Active Substance: ACETAMINOPHEN
  14. ELIQUIS [Concomitant]
     Active Substance: APIXABAN

REACTIONS (2)
  - Somnolence [Unknown]
  - Fatigue [Unknown]
